FAERS Safety Report 14142623 (Version 3)
Quarter: 2018Q3

REPORT INFORMATION
  Report Type: Spontaneous
  Country: US (occurrence: US)
  Receive Date: 20171030
  Receipt Date: 20180719
  Transmission Date: 20181010
  Serious: No
  Sender: FDA-Public Use
  Company Number: US-ASTRAZENECA-2017SE51675

PATIENT
  Sex: Female
  Weight: 49.9 kg

DRUGS (3)
  1. TUDORZA PRESSAIR [Suspect]
     Active Substance: ACLIDINIUM BROMIDE
     Indication: ASTHMA
     Dosage: 1 PUFF, 400 UG
     Route: 055
     Dates: start: 20161128
  2. TUDORZA PRESSAIR [Suspect]
     Active Substance: ACLIDINIUM BROMIDE
     Indication: CHRONIC OBSTRUCTIVE PULMONARY DISEASE
     Dosage: 1 PUFF, 400 UG
     Route: 055
     Dates: start: 20161128
  3. SYMBICORT [Suspect]
     Active Substance: BUDESONIDE\FORMOTEROL FUMARATE DIHYDRATE
     Indication: CHRONIC OBSTRUCTIVE PULMONARY DISEASE
     Dosage: 160/4.5 MCG, TWO INHALATIONS TWO TIMES A DAY
     Route: 055
     Dates: start: 2014

REACTIONS (3)
  - Dyspnoea [Unknown]
  - Device malfunction [Recovered/Resolved]
  - Intentional product misuse [Unknown]
